FAERS Safety Report 24306143 (Version 4)
Quarter: 2024Q4

REPORT INFORMATION
  Report Type: Report from Study
  Country: KR (occurrence: KR)
  Receive Date: 20240911
  Receipt Date: 20241016
  Transmission Date: 20250114
  Serious: Yes (Other)
  Sender: ASTELLAS
  Company Number: KR-ASTELLAS-2024-AER-002882

PATIENT
  Age: 30 Year
  Sex: Female
  Weight: 50 kg

DRUGS (9)
  1. GILTERITINIB [Suspect]
     Active Substance: GILTERITINIB
     Indication: Acute myeloid leukaemia recurrent
     Route: 048
     Dates: start: 20230629, end: 20230827
  2. GILTERITINIB [Suspect]
     Active Substance: GILTERITINIB
     Indication: Acute myeloid leukaemia refractory
     Route: 048
     Dates: start: 20230828, end: 20230912
  3. GILTERITINIB [Suspect]
     Active Substance: GILTERITINIB
     Indication: FLT3 gene mutation
  4. PRISTIQ EXTENDED-RELEASE [Concomitant]
     Active Substance: DESVENLAFAXINE SUCCINATE
     Indication: Insomnia
     Dosage: 100MG/QD/PO
     Route: 048
     Dates: start: 2018
  5. LEXAPRO [Concomitant]
     Active Substance: ESCITALOPRAM OXALATE
     Indication: Insomnia
     Dosage: 15MG/QD/PO
     Route: 048
     Dates: start: 2018
  6. RIVOTRIL [Concomitant]
     Active Substance: CLONAZEPAM
     Indication: Insomnia
     Dosage: 0.5MG/QD/PO
     Route: 048
     Dates: start: 2018
  7. K CAB [Concomitant]
     Indication: Prophylaxis
     Dosage: 50MG/QD/PO
     Route: 048
     Dates: start: 20230511
  8. TWOLION [Concomitant]
     Indication: Prophylaxis
     Dosage: 10MG/BID/PO
     Route: 048
     Dates: start: 20230602
  9. MAXIPIME BORYUNG [Concomitant]
     Indication: Prophylaxis
     Dosage: 2G/TID/IV
     Route: 042
     Dates: start: 20230815, end: 20230922

REACTIONS (3)
  - Toxic neuropathy [Recovered/Resolved]
  - Febrile neutropenia [Recovered/Resolved]
  - Haemorrhoids [Recovered/Resolved]

NARRATIVE: CASE EVENT DATE: 20230814
